FAERS Safety Report 8485393-0 (Version None)
Quarter: 2012Q3

REPORT INFORMATION
  Report Type: 
  Country: None (occurrence: None)
  Receive Date: 20120703
  Receipt Date: 20120625
  Transmission Date: 20120928
  Serious: Yes (Death, Hospitalization, Other)
  Sender: FDA-Public Use
  Company Number: PHHY2011JP34887

PATIENT
  Sex: Male
  Weight: 61 kg

DRUGS (11)
  1. SUNITINIB MALATE [Concomitant]
     Indication: METASTATIC RENAL CELL CARCINOMA
     Dosage: 50 MG, UNK
     Route: 048
     Dates: start: 20091107, end: 20101203
  2. VERAPAMIL HCL [Concomitant]
     Indication: PROPHYLAXIS
     Dosage: 120 MG, UNK
     Route: 048
     Dates: start: 20091128
  3. LOXOPROFEN [Concomitant]
     Indication: METASTATIC RENAL CELL CARCINOMA
     Dosage: 180 MG, UNK
     Route: 048
     Dates: start: 20110311, end: 20110416
  4. LASIX [Concomitant]
     Indication: PROPHYLAXIS
     Dosage: 40 MG, UNK
     Route: 048
     Dates: start: 20091207
  5. PENTAZOCINE LACTATE [Concomitant]
     Indication: METASTATIC RENAL CELL CARCINOMA
     Dosage: 25 MG, UNK
     Route: 048
     Dates: start: 20110416
  6. PENTAZOCINE LACTATE [Concomitant]
     Dosage: 50 MG, UNK
     Route: 048
  7. TRAMADOL HYDROCHLORIDE [Concomitant]
     Indication: METASTATIC RENAL CELL CARCINOMA
     Dosage: 75 MG, UNK
     Route: 048
     Dates: start: 20110420, end: 20110427
  8. AFINITOR [Suspect]
     Dosage: 5 MG, DAILY
     Route: 048
     Dates: start: 20110602, end: 20110616
  9. AFINITOR [Suspect]
     Indication: METASTATIC RENAL CELL CARCINOMA
     Dosage: 10 MG, DAILY
     Route: 048
     Dates: start: 20101217, end: 20110412
  10. ALLOPURINOL [Concomitant]
     Indication: PROPHYLAXIS
     Dosage: 100 MG, UNK
     Route: 048
     Dates: start: 20091126
  11. KENALOG [Concomitant]
     Indication: PROPHYLAXIS
     Dates: start: 20091130

REACTIONS (9)
  - NEOPLASM PROGRESSION [None]
  - BLOOD CREATININE INCREASED [None]
  - NEOPLASM MALIGNANT [None]
  - INTERSTITIAL LUNG DISEASE [None]
  - DYSPNOEA [None]
  - PYREXIA [None]
  - RESPIRATORY DISTRESS [None]
  - PNEUMONIA [None]
  - C-REACTIVE PROTEIN INCREASED [None]
